FAERS Safety Report 10340188 (Version 1)
Quarter: 2014Q3

REPORT INFORMATION
  Report Type: Other
  Country: BE (occurrence: BE)
  Receive Date: 20140724
  Receipt Date: 20140724
  Transmission Date: 20150326
  Serious: Yes (Hospitalization)
  Sender: FDA-Public Use
  Company Number: BE-BRISTOL-MYERS SQUIBB COMPANY-21221247

PATIENT
  Age: 67 Year
  Sex: Male

DRUGS (2)
  1. ACENOCOUMAROL [Interacting]
     Active Substance: ACENOCOUMAROL
     Indication: CARDIOVASCULAR DISORDER
     Dosage: LONG TERM
  2. CETUXIMAB [Suspect]
     Active Substance: CETUXIMAB
     Indication: TONSIL CANCER
     Dosage: FULL DOSE (1ST, 2ND, 3RD DOSE)?REDUCED BY 50% (4TH, 5TH DOSE)?6TH DOSE FULL DOSE

REACTIONS (10)
  - Epilepsy [Unknown]
  - Radiation skin injury [Unknown]
  - Cheilitis [Unknown]
  - Localised oedema [Unknown]
  - Drug interaction [Unknown]
  - Subarachnoid haemorrhage [Unknown]
  - Staphylococcal sepsis [Unknown]
  - Renal failure acute [Unknown]
  - Stomatitis [Unknown]
  - Dermatitis [Unknown]
